FAERS Safety Report 10199845 (Version 1)
Quarter: 2014Q2

REPORT INFORMATION
  Report Type: Spontaneous
  Country: US (occurrence: US)
  Receive Date: 20140527
  Receipt Date: 20140527
  Transmission Date: 20141212
  Serious: No
  Sender: FDA-Public Use
  Company Number: US-ENDO PHARMACEUTICALS INC.-GILD20130030

PATIENT
  Age: 28 Year
  Sex: Female
  Weight: 52.21 kg

DRUGS (1)
  1. GILDESS FE 1/20 [Suspect]
     Indication: MENSTRUATION IRREGULAR
     Dosage: 1/20
     Route: 048
     Dates: start: 201301

REACTIONS (2)
  - Back pain [Not Recovered/Not Resolved]
  - Menorrhagia [Not Recovered/Not Resolved]
